APPROVED DRUG PRODUCT: ASMANEX TWISTHALER
Active Ingredient: MOMETASONE FUROATE
Strength: 0.11MG/INH
Dosage Form/Route: POWDER;INHALATION
Application: N021067 | Product #002
Applicant: ORGANON LLC
Approved: Feb 1, 2008 | RLD: Yes | RS: Yes | Type: RX